FAERS Safety Report 9203742 (Version 1)
Quarter: 2013Q1

REPORT INFORMATION
  Report Type: Spontaneous
  Country: US (occurrence: None)
  Receive Date: 20120709
  Receipt Date: 20120709
  Transmission Date: 20140127
  Serious: Yes (Other)
  Sender: FDA-Public Use
  Company Number: PHEH2011US012117

PATIENT
  Age: 70 Year
  Sex: Female

DRUGS (1)
  1. GLEEVEC (IMATINIB) [Suspect]
     Route: 048
     Dates: start: 20111128

REACTIONS (6)
  - Gastrointestinal haemorrhage [None]
  - Gastric ulcer [None]
  - Anaemia [None]
  - Muscle spasms [None]
  - Asthenia [None]
  - Peripheral coldness [None]
